FAERS Safety Report 9999540 (Version 1)
Quarter: 2014Q1

REPORT INFORMATION
  Report Type: Spontaneous
  Country: BR (occurrence: BR)
  Receive Date: 20140312
  Receipt Date: 20140312
  Transmission Date: 20141002
  Serious: Yes (Other)
  Sender: FDA-Public Use
  Company Number: BR-SA-2014SA027834

PATIENT
  Age: 56 Year
  Sex: Male
  Weight: 88 kg

DRUGS (10)
  1. AMARYL [Suspect]
     Indication: TYPE 2 DIABETES MELLITUS
     Route: 048
     Dates: start: 2012, end: 20140227
  2. AMARYL [Suspect]
     Indication: TYPE 2 DIABETES MELLITUS
     Route: 048
     Dates: start: 20140304
  3. AMARYL [Suspect]
     Indication: TYPE 2 DIABETES MELLITUS
     Route: 048
     Dates: start: 20140228, end: 20140228
  4. OMEPRAZOLE [Concomitant]
     Indication: DYSPEPSIA
     Route: 048
  5. PREDSIM [Concomitant]
     Indication: IMMUNOSUPPRESSANT DRUG THERAPY
     Dosage: TAKEN FROM : 1 AND HALF YEARS AGO
     Route: 048
     Dates: start: 2012
  6. JANUMET [Concomitant]
     Indication: TYPE 2 DIABETES MELLITUS
     Dosage: TAKEN FROM : 1 AND HALF YEARS AGO
     Route: 048
     Dates: start: 2012
  7. METOTREXATE [Concomitant]
     Indication: IMMUNOSUPPRESSANT DRUG THERAPY
     Dosage: FREQUENCY: EVERY WEEK?TAKEN FROM: 5 MONTHS AGO
     Route: 048
     Dates: start: 2013
  8. MIOSAN [Concomitant]
     Indication: MYALGIA
     Dosage: TAKEN FROM: 6 MONTHS AGO
     Route: 048
     Dates: start: 2013
  9. PLAQUINOL [Concomitant]
     Indication: IMMUNOSUPPRESSANT DRUG THERAPY
     Dosage: TAKEN FROM : 1 YEAR AGO
     Route: 048
     Dates: start: 2013
  10. ENALAPRIL MALEATE [Concomitant]
     Indication: HYPERTENSION
     Route: 048

REACTIONS (5)
  - Retinal disorder [Unknown]
  - Vision blurred [Unknown]
  - Effusion [Unknown]
  - Hypoglycaemia [Recovered/Resolved]
  - Accidental overdose [Unknown]
